FAERS Safety Report 11739613 (Version 2)
Quarter: 2016Q1

REPORT INFORMATION
  Report Type: Spontaneous
  Country: US (occurrence: US)
  Receive Date: 20151113
  Receipt Date: 20160106
  Transmission Date: 20160525
  Serious: Yes (Death, Other)
  Sender: FDA-Public Use
  Company Number: US-BAXTER-2015BAX060081

PATIENT
  Sex: Female

DRUGS (4)
  1. GENTAMICIN SULFATE IN 0.9% SODIUM CHLORIDE INJECTION [Suspect]
     Active Substance: GENTAMICIN SULFATE
     Indication: SEPSIS
     Route: 042
     Dates: start: 20131002, end: 20131014
  2. AMPICILLIN [Suspect]
     Active Substance: AMPICILLIN
     Indication: SEPSIS
     Route: 042
  3. VECURONIUM BROMIDE. [Suspect]
     Active Substance: VECURONIUM BROMIDE
     Indication: GASTROINTESTINAL ANASTOMOTIC LEAK
  4. VECURONIUM BROMIDE. [Suspect]
     Active Substance: VECURONIUM BROMIDE
     Indication: PROPHYLAXIS
     Dosage: FOR 7 DAYS
     Route: 042

REACTIONS (4)
  - Acute kidney injury [Not Recovered/Not Resolved]
  - Neuromuscular block prolonged [Not Recovered/Not Resolved]
  - Toxicity to various agents [Unknown]
  - Multiple organ dysfunction syndrome [Fatal]
